FAERS Safety Report 5364911-5 (Version None)
Quarter: 2007Q2

REPORT INFORMATION
  Report Type: 
  Country: None (occurrence: None)
  Receive Date: 20070530
  Receipt Date: 20070125
  Transmission Date: 20071010
  Serious: No
  Sender: FDA-Public Use
  Company Number: 2007PV029001

PATIENT
  Age: 66 Year
  Sex: Female
  Weight: 72.1219 kg

DRUGS (5)
  1. BYETTA [Suspect]
     Indication: DIABETES MELLITUS NON-INSULIN-DEPENDENT
     Dosage: 5 MCG;QD;SC ; 5 MCG;BID;SC ; 10 MCG;BID;SC ; 5 MCG;BID;SC
     Route: 058
     Dates: start: 20060601, end: 20060101
  2. BYETTA [Suspect]
     Indication: DIABETES MELLITUS NON-INSULIN-DEPENDENT
     Dosage: 5 MCG;QD;SC ; 5 MCG;BID;SC ; 10 MCG;BID;SC ; 5 MCG;BID;SC
     Route: 058
     Dates: start: 20060501, end: 20060601
  3. BYETTA [Suspect]
     Indication: DIABETES MELLITUS NON-INSULIN-DEPENDENT
     Dosage: 5 MCG;QD;SC ; 5 MCG;BID;SC ; 10 MCG;BID;SC ; 5 MCG;BID;SC
     Route: 058
     Dates: start: 20060101, end: 20070101
  4. BYETTA [Suspect]
     Indication: DIABETES MELLITUS NON-INSULIN-DEPENDENT
     Dosage: 5 MCG;QD;SC ; 5 MCG;BID;SC ; 10 MCG;BID;SC ; 5 MCG;BID;SC
     Route: 058
     Dates: start: 20070117
  5. ACTOSPLUS [Concomitant]

REACTIONS (3)
  - BLOOD GLUCOSE FLUCTUATION [None]
  - GLYCOSYLATED HAEMOGLOBIN INCREASED [None]
  - WEIGHT DECREASED [None]
